FAERS Safety Report 24276848 (Version 2)
Quarter: 2024Q4

REPORT INFORMATION
  Report Type: Spontaneous
  Country: CH (occurrence: CH)
  Receive Date: 20240903
  Receipt Date: 20241008
  Transmission Date: 20250115
  Serious: Yes (Other)
  Sender: TAKEDA
  Company Number: CH-TAKEDA-2024TUS087306

PATIENT
  Sex: Female

DRUGS (2)
  1. ENTYVIO [Suspect]
     Active Substance: VEDOLIZUMAB
     Indication: Colitis ulcerative
     Dosage: UNK
     Route: 065
     Dates: start: 2022, end: 202308
  2. ENTYVIO [Suspect]
     Active Substance: VEDOLIZUMAB
     Dosage: UNK
     Route: 065

REACTIONS (22)
  - Colitis ulcerative [Unknown]
  - Gestational diabetes [Unknown]
  - Gastroenteritis Escherichia coli [Unknown]
  - Endometriosis [Unknown]
  - Pregnancy [Recovered/Resolved]
  - Diffuse alopecia [Unknown]
  - Silent thyroiditis [Unknown]
  - Depression [Unknown]
  - Dyslipidaemia [Unknown]
  - Large intestine polyp [Unknown]
  - Obesity [Unknown]
  - Pelvic adhesions [Unknown]
  - Iron deficiency [Unknown]
  - Vitamin D deficiency [Unknown]
  - Tinea versicolour [Unknown]
  - Pain [Unknown]
  - Vomiting [Unknown]
  - Paraesthesia [Unknown]
  - Abdominal distension [Unknown]
  - Flatulence [Unknown]
  - Arthralgia [Unknown]
  - Nausea [Unknown]

NARRATIVE: CASE EVENT DATE: 20230101
